FAERS Safety Report 4949771-6 (Version None)
Quarter: 2006Q1

REPORT INFORMATION
  Report Type: 
  Country: None (occurrence: None)
  Receive Date: 20060315
  Receipt Date: 20060224
  Transmission Date: 20060701
  Serious: Yes (Other)
  Sender: FDA-Public Use
  Company Number: US200602005263

PATIENT
  Age: 83 Year
  Sex: Female

DRUGS (3)
  1. FORTEO [Suspect]
     Indication: OSTEOPOROSIS
     Dates: start: 20040201
  2. FORTEO [Concomitant]
  3. XANAX /USA/ (ALPRAZOLAM) [Concomitant]

REACTIONS (8)
  - BACK DISORDER [None]
  - BONE DISORDER [None]
  - FALL [None]
  - FOOT FRACTURE [None]
  - MULTIPLE FRACTURES [None]
  - PHARMACEUTICAL PRODUCT COMPLAINT [None]
  - POST PROCEDURAL COMPLICATION [None]
  - TREMOR [None]
